FAERS Safety Report 17514069 (Version 1)
Quarter: 2020Q1

REPORT INFORMATION
  Report Type: Report from Study
  Country: None (occurrence: US)
  Receive Date: 20200306
  Receipt Date: 20200306
  Transmission Date: 20200409
  Serious: Yes (Hospitalization, Disabling, Other)
  Sender: FDA-Public Use
  Company Number: US-ABBVIE-20K-163-3300928-00

PATIENT
  Age: 73 Year
  Sex: Female
  Weight: 64 kg

DRUGS (10)
  1. SEROQUEL [Concomitant]
     Active Substance: QUETIAPINE FUMARATE
     Indication: HALLUCINATION
     Route: 048
     Dates: start: 20190222
  2. QUETIAPINE. [Concomitant]
     Active Substance: QUETIAPINE
     Indication: HALLUCINATION
     Route: 048
     Dates: start: 20190925
  3. MIDODRINE [Concomitant]
     Active Substance: MIDODRINE
     Indication: HYPOTENSION
     Route: 048
     Dates: start: 20190919
  4. DROXIDOPA [Concomitant]
     Active Substance: DROXIDOPA
     Indication: LABILE BLOOD PRESSURE
     Route: 048
     Dates: start: 20190926, end: 20191105
  5. ASPIRIN. [Concomitant]
     Active Substance: ASPIRIN
     Indication: ANTICOAGULANT THERAPY
     Route: 048
     Dates: start: 20151106
  6. DUOPA [Suspect]
     Active Substance: CARBIDOPA\LEVODOPA
     Indication: PARKINSON^S DISEASE
     Dosage: MD: 11 ML, CD 1.0 ML/H, ED: 1.0 ML/DOSE, ED PER DAY: 12, TREATMENT DURATION: 20 HOURS
     Route: 050
     Dates: start: 20170822
  7. MYRBETRIQ [Concomitant]
     Active Substance: MIRABEGRON
     Indication: HYPERTONIC BLADDER
     Route: 048
     Dates: start: 20190812
  8. NORCO [Concomitant]
     Active Substance: ACETAMINOPHEN\HYDROCODONE BITARTRATE
     Indication: PAIN MANAGEMENT
     Dosage: 5-325 MG
     Route: 048
     Dates: start: 20170825
  9. ZOLOFT [Concomitant]
     Active Substance: SERTRALINE HYDROCHLORIDE
     Indication: ANXIETY
     Route: 048
     Dates: start: 20181120
  10. DROXIDOPA [Concomitant]
     Active Substance: DROXIDOPA
     Indication: HYPOTENSION
     Dosage: 100 - 300 MG
     Route: 048
     Dates: start: 20191105

REACTIONS (8)
  - Syncope [Not Recovered/Not Resolved]
  - Atrial tachycardia [Recovered/Resolved]
  - Hallucination [Unknown]
  - Labile hypertension [Not Recovered/Not Resolved]
  - Acute myocardial infarction [Recovered/Resolved]
  - Cardiac failure congestive [Not Recovered/Not Resolved]
  - Urinary tract infection [Not Recovered/Not Resolved]
  - Fall [Recovered/Resolved]

NARRATIVE: CASE EVENT DATE: 20200224
